FAERS Safety Report 8678088 (Version 4)
Quarter: 2013Q2

REPORT INFORMATION
  Report Type: Spontaneous
  Country: US (occurrence: US)
  Receive Date: 20120723
  Receipt Date: 20130426
  Transmission Date: 20140414
  Serious: Yes (Death, Hospitalization, Other)
  Sender: FDA-Public Use
  Company Number: US-B.I. PHARMACEUTICALS,INC./RIDGEFIELD-2012-BP-16182BP

PATIENT
  Age: 88 Year
  Sex: Female
  Weight: 56.25 kg

DRUGS (11)
  1. PRADAXA [Suspect]
     Indication: ANTICOAGULANT THERAPY
     Dosage: 300 MG
     Route: 048
     Dates: start: 20110313, end: 20111028
  2. PRADAXA [Suspect]
     Indication: ATRIAL FIBRILLATION
     Dosage: 150 MG
     Route: 048
     Dates: end: 20111028
  3. LISINOPRIL [Concomitant]
     Dosage: 20 MG
     Route: 048
  4. ONGLYZA [Concomitant]
     Dosage: 5 MG
     Route: 048
  5. TRAMADOL [Concomitant]
     Route: 048
  6. EVISTA [Concomitant]
     Dosage: 60 MG
     Route: 048
  7. PROCARDIA XL [Concomitant]
     Dosage: 60 MG
     Route: 048
  8. LIPITOR [Concomitant]
     Dosage: 80 MG
     Route: 048
  9. K-DUR [Concomitant]
     Dosage: 20 MEQ
     Route: 048
  10. TOPROL XL [Concomitant]
     Dosage: 50 MG
     Route: 048
  11. AMIODARONE [Concomitant]
     Dosage: 200 MG
     Route: 048

REACTIONS (3)
  - Lower gastrointestinal haemorrhage [Fatal]
  - Coagulopathy [Recovered/Resolved]
  - Hypoxia [Unknown]
